FAERS Safety Report 13088074 (Version 1)
Quarter: 2017Q1

REPORT INFORMATION
  Report Type: Spontaneous
  Country: US (occurrence: US)
  Receive Date: 20170105
  Receipt Date: 20170105
  Transmission Date: 20170428
  Serious: No
  Sender: FDA-Public Use
  Company Number: US-009507513-1612USA006354

PATIENT
  Age: 35 Year
  Sex: Female
  Weight: 72.56 kg

DRUGS (1)
  1. NEXPLANON [Suspect]
     Active Substance: ETONOGESTREL
     Indication: CONTRACEPTION
     Dosage: 1 ROD EVERY THREE YEARS
     Route: 059
     Dates: start: 20161109

REACTIONS (4)
  - Bleeding time prolonged [Unknown]
  - Mood swings [Unknown]
  - Weight increased [Unknown]
  - Skin disorder [Unknown]

NARRATIVE: CASE EVENT DATE: 20161116
